FAERS Safety Report 18531964 (Version 1)
Quarter: 2020Q4

REPORT INFORMATION
  Report Type: Report from Study
  Country: US (occurrence: US)
  Receive Date: 20201123
  Receipt Date: 20201123
  Transmission Date: 20210114
  Serious: Yes (Other)
  Sender: FDA-Public Use
  Company Number: US-EMD SERONO-9199201

PATIENT
  Age: 58 Year
  Sex: Male

DRUGS (1)
  1. SEROSTIM [Suspect]
     Active Substance: SOMATROPIN
     Indication: CACHEXIA
     Dates: start: 19871111

REACTIONS (6)
  - Influenza [Unknown]
  - Stress [Unknown]
  - Neoplasm malignant [Recovered/Resolved]
  - T-lymphocyte count decreased [Unknown]
  - Treatment noncompliance [Unknown]
  - Blood test abnormal [Unknown]

NARRATIVE: CASE EVENT DATE: 2020
